FAERS Safety Report 4984492-5 (Version None)
Quarter: 2006Q2

REPORT INFORMATION
  Report Type: 
  Country: None (occurrence: None)
  Receive Date: 20060420
  Receipt Date: 20060328
  Transmission Date: 20061013
  Serious: Yes (Hospitalization)
  Sender: FDA-Public Use
  Company Number: ENTC2005-0297

PATIENT
  Age: 1 Day
  Sex: Female

DRUGS (1)
  1. STALEVO 100 [Suspect]
     Dosage: TRANSPLACENTAL   FROM GESTATIONAL WEEK 12
     Route: 064

REACTIONS (8)
  - CONVULSION NEONATAL [None]
  - DRUG EXPOSURE DURING PREGNANCY [None]
  - DRUG EXPOSURE VIA BREAST MILK [None]
  - DRUG INEFFECTIVE [None]
  - MENINGITIS NEONATAL [None]
  - MUSCLE SPASMS [None]
  - NEONATAL DISORDER [None]
  - NEONATAL PNEUMONIA [None]
